FAERS Safety Report 23151316 (Version 1)
Quarter: 2023Q4

REPORT INFORMATION
  Report Type: Report from Study
  Country: US (occurrence: None)
  Receive Date: 20231107
  Receipt Date: 20231107
  Transmission Date: 20240109
  Serious: Yes (Other)
  Sender: FDA-Public Use
  Company Number: 2023A247532

PATIENT
  Sex: Female
  Weight: 29 kg

DRUGS (3)
  1. KOSELUGO [Suspect]
     Active Substance: SELUMETINIB
     Indication: Central nervous system neoplasm
     Route: 048
     Dates: start: 20221201
  2. GABAPENTIN [Concomitant]
     Active Substance: GABAPENTIN
  3. TYLENOL [Concomitant]
     Active Substance: ACETAMINOPHEN

REACTIONS (1)
  - Thrombosis [Unknown]
